FAERS Safety Report 8805461 (Version 1)
Quarter: 2012Q4

REPORT INFORMATION
  Report Type: 
  Country: JP (occurrence: JP)
  Receive Date: 20120924
  Receipt Date: 20120924
  Transmission Date: 20130627
  Serious: Yes (Other)
  Sender: FDA-Public Use
  Company Number: JP-MYLANLABS-2012S1018882

PATIENT
  Age: 8 Year
  Sex: Male

DRUGS (1)
  1. ISOTRETINOIN [Suspect]
     Indication: NEUROBLASTOMA
     Dosage: 160mg/m2/day for 14 days, followed by 14 days rest
     Route: 065

REACTIONS (2)
  - Bone marrow oedema [Unknown]
  - Arthralgia [Unknown]
